FAERS Safety Report 21999800 (Version 1)
Quarter: 2023Q1

REPORT INFORMATION
  Report Type: Spontaneous
  Country: US (occurrence: US)
  Receive Date: 20230216
  Receipt Date: 20230216
  Transmission Date: 20230417
  Serious: No
  Sender: FDA-Public Use
  Company Number: US-PFIZER INC-PV202300016831

PATIENT
  Age: 56 Year
  Sex: Female
  Weight: 81.633 kg

DRUGS (1)
  1. NURTEC ODT [Suspect]
     Active Substance: RIMEGEPANT SULFATE
     Indication: Migraine
     Dosage: 1 DF, AS NEEDED
     Dates: start: 2021

REACTIONS (2)
  - Therapeutic product effect incomplete [Unknown]
  - Intentional overdose [Unknown]
